FAERS Safety Report 8512825-1 (Version None)
Quarter: 2012Q3

REPORT INFORMATION
  Report Type: 
  Country: None (occurrence: None)
  Receive Date: 20120716
  Receipt Date: 20120710
  Transmission Date: 20120928
  Serious: No
  Sender: FDA-Public Use
  Company Number: JP-PFIZER INC-2012144753

PATIENT
  Age: 70 Year
  Sex: Male

DRUGS (5)
  1. FOSPHENYTOIN SODIUM [Suspect]
     Indication: EPILEPSY
     Dosage: 375 MG, 1X/DAY
     Route: 042
     Dates: start: 20120525, end: 20120529
  2. POTASSIUM [Concomitant]
     Dosage: UNK
     Dates: start: 20120512
  3. VITAMINS NOS [Concomitant]
     Dosage: UNK
     Dates: start: 20120516
  4. HYDROCORTISONE [Concomitant]
     Indication: PLEURAL EFFUSION
     Dosage: UNK
     Route: 042
     Dates: start: 20120518, end: 20120522
  5. FUROSEMIDE [Concomitant]
     Indication: CARDIAC FAILURE
     Dosage: UNK
     Dates: start: 20120516, end: 20120525

REACTIONS (1)
  - RASH [None]
